FAERS Safety Report 5860689-7 (Version None)
Quarter: 2008Q3

REPORT INFORMATION
  Report Type: 
  Country: None (occurrence: None)
  Receive Date: 20080827
  Receipt Date: 20080122
  Transmission Date: 20090109
  Serious: No
  Sender: FDA-Public Use
  Company Number: US-ABBOTT-07P-163-0421927-00

PATIENT
  Sex: Male
  Weight: 83.082 kg

DRUGS (3)
  1. COATED PDS [Suspect]
     Indication: BLOOD TRIGLYCERIDES INCREASED
     Route: 048
     Dates: start: 20070701
  2. ROSUVASTATIN [Concomitant]
     Indication: BLOOD TRIGLYCERIDES INCREASED
     Route: 048
  3. EZETIMIBE [Concomitant]
     Indication: BLOOD TRIGLYCERIDES INCREASED
     Route: 048

REACTIONS (1)
  - FLUSHING [None]
